FAERS Safety Report 9028215 (Version 1)
Quarter: 2013Q1

REPORT INFORMATION
  Report Type: Spontaneous
  Country: KR (occurrence: KR)
  Receive Date: 20130123
  Receipt Date: 20130123
  Transmission Date: 20140127
  Serious: Yes (Hospitalization)
  Sender: FDA-Public Use
  Company Number: KR-BAYER-2013-007807

PATIENT
  Age: 71 Year
  Sex: Male

DRUGS (4)
  1. NEXAVAR [Suspect]
     Indication: HEPATIC CANCER METASTATIC
     Dosage: 400 MG, BID
     Dates: start: 20101108
  2. NEXAVAR [Suspect]
     Indication: HEPATIC CANCER METASTATIC
     Dosage: 200 MG, BID
     Dates: end: 2011
  3. NEXAVAR [Suspect]
     Indication: HEPATIC CANCER METASTATIC
     Dosage: 400 MG, BID
     Dates: start: 20110207
  4. NEXAVAR [Suspect]
     Indication: HEPATIC CANCER METASTATIC
     Dosage: 200 MG, BID

REACTIONS (3)
  - Hepatic encephalopathy [Recovering/Resolving]
  - Aphthous stomatitis [Recovering/Resolving]
  - Palmar-plantar erythrodysaesthesia syndrome [Recovering/Resolving]
